FAERS Safety Report 13376000 (Version 1)
Quarter: 2017Q1

REPORT INFORMATION
  Report Type: Spontaneous
  Country: US (occurrence: US)
  Receive Date: 20170328
  Receipt Date: 20170328
  Transmission Date: 20170429
  Serious: Yes (Hospitalization, Other)
  Sender: FDA-Public Use
  Company Number: US-ASTRAZENECA-2017SE29517

PATIENT
  Age: 22852 Day
  Sex: Female
  Weight: 90.7 kg

DRUGS (13)
  1. CALCIUM WITH VITAMIN D [Concomitant]
     Active Substance: CALCIUM\VITAMIN D
     Indication: SUPPLEMENTATION THERAPY
     Route: 048
  2. FOSAMAX [Concomitant]
     Active Substance: ALENDRONATE SODIUM
     Indication: BONE DISORDER
     Route: 048
     Dates: start: 20150220
  3. ARIMIDEX [Suspect]
     Active Substance: ANASTROZOLE
     Indication: AROMATASE INHIBITION THERAPY
     Route: 048
     Dates: start: 201303, end: 201507
  4. TRAZODONE [Concomitant]
     Active Substance: TRAZODONE HYDROCHLORIDE
     Indication: SLEEP DISORDER
     Dosage: AS REQUIRED
     Route: 048
     Dates: start: 20150501
  5. LOVENOX [Concomitant]
     Active Substance: ENOXAPARIN SODIUM
     Indication: ANTICOAGULANT THERAPY
     Route: 058
     Dates: start: 20170209
  6. GLUCOSAMINE [Concomitant]
     Active Substance: GLUCOSAMINE
     Route: 048
  7. LISINOPRIL. [Suspect]
     Active Substance: LISINOPRIL
     Indication: BLOOD PRESSURE ABNORMAL
     Route: 048
  8. XARELTO [Concomitant]
     Active Substance: RIVAROXABAN
     Indication: ANTICOAGULANT THERAPY
     Dosage: 15.0MG AS REQUIRED
     Route: 048
     Dates: start: 20170209
  9. TAMOXIFEN [Suspect]
     Active Substance: TAMOXIFEN
     Route: 048
     Dates: start: 201601
  10. LIPITOR [Concomitant]
     Active Substance: ATORVASTATIN CALCIUM
     Indication: LIPIDS
     Route: 048
     Dates: start: 20140923
  11. OMEGA-3 TRIGLYCERIDES [Concomitant]
     Dosage: EVERY DAY
     Route: 048
  12. ARIMIDEX [Suspect]
     Active Substance: ANASTROZOLE
     Indication: AROMATASE INHIBITION THERAPY
     Route: 048
     Dates: start: 20161205, end: 20161231
  13. ATIVAN [Concomitant]
     Active Substance: LORAZEPAM
     Indication: ANXIETY
     Dosage: 0.5MG AS REQUIRED
     Route: 048
     Dates: start: 20161121

REACTIONS (17)
  - Deep vein thrombosis [Unknown]
  - Deafness [Unknown]
  - Skin disorder [Recovering/Resolving]
  - Visual acuity reduced [Recovering/Resolving]
  - Hot flush [Unknown]
  - Hypertension [Unknown]
  - Tendon rupture [Unknown]
  - Osteoarthritis [Unknown]
  - Metastases to skin [Unknown]
  - Insomnia [Unknown]
  - Metastases to lung [Unknown]
  - Myalgia [Unknown]
  - Chronic kidney disease [Unknown]
  - Pulmonary embolism [Not Recovered/Not Resolved]
  - Gastrooesophageal reflux disease [Unknown]
  - Metastases to lymph nodes [Unknown]
  - Bundle branch block left [None]

NARRATIVE: CASE EVENT DATE: 20170126
